FAERS Safety Report 22590976 (Version 1)
Quarter: 2023Q2

REPORT INFORMATION
  Report Type: Spontaneous
  Country: US (occurrence: US)
  Receive Date: 20230612
  Receipt Date: 20230612
  Transmission Date: 20230721
  Serious: No
  Sender: FDA-Public Use
  Company Number: US-MYLANLABS-2023M1046088

PATIENT
  Sex: Male
  Weight: 46.27 kg

DRUGS (4)
  1. METHYLPHENIDATE [Suspect]
     Active Substance: METHYLPHENIDATE
     Indication: Attention deficit hyperactivity disorder
     Dosage: 40 MILLIGRAM, QD (TWO 20 MILLIGRAM PATCHES DAILY)
     Route: 062
  2. GUAIFENESIN [Concomitant]
     Active Substance: GUAIFENESIN
     Dosage: 4 MILLIGRAM
     Route: 048
  3. METHYLPHENIDATE [Concomitant]
     Active Substance: METHYLPHENIDATE
     Dosage: 30 MILLIGRAM, QD
     Route: 048
  4. MELATONIN [Concomitant]
     Active Substance: MELATONIN
     Dosage: 5 MILLIGRAM
     Route: 065

REACTIONS (4)
  - Hyperphagia [Unknown]
  - Vomiting [Unknown]
  - Drug ineffective [Unknown]
  - Product storage error [Unknown]
